FAERS Safety Report 9064318 (Version 1)
Quarter: 2013Q1

REPORT INFORMATION
  Report Type: Spontaneous
  Country: PR (occurrence: PR)
  Receive Date: 20130130
  Receipt Date: 20130130
  Transmission Date: 20140127
  Serious: Yes (Hospitalization, Other)
  Sender: FDA-Public Use
  Company Number: PR-ABBOTT-12P-131-0949456-00

PATIENT
  Age: 38 Year
  Sex: Female
  Weight: 79 kg

DRUGS (10)
  1. HUMIRA 40 MG/0.8 ML PEN [Suspect]
     Indication: RHEUMATOID ARTHRITIS
     Route: 058
     Dates: start: 2011, end: 201112
  2. HUMIRA 40 MG/0.8 ML PEN [Suspect]
     Route: 058
     Dates: start: 201203
  3. NEURONTIN [Concomitant]
     Indication: FIBROMYALGIA
     Route: 048
  4. TOPAMAX [Concomitant]
     Indication: FIBROMYALGIA
     Route: 048
  5. ZANAFLEX [Concomitant]
     Indication: FIBROMYALGIA
     Dosage: 1 TABLET AT BEDTIME
     Route: 048
  6. AMITRIPTYLINE [Concomitant]
     Indication: DEPRESSION
     Dosage: 1 TABLET AT BEDTIME
     Route: 048
  7. EFFEXOR [Concomitant]
     Indication: DEPRESSION
     Route: 048
  8. RESTORIL [Concomitant]
     Indication: DEPRESSION
     Dosage: 1 TABLET AT BEDTIME
     Route: 048
  9. OMEPRAZOLE [Concomitant]
     Indication: GASTRIC DISORDER
     Route: 048
  10. SINGULAR [Concomitant]
     Indication: ASTHMA
     Dosage: 1 TABLET AT BEDTIME
     Route: 048

REACTIONS (2)
  - Nephrolithiasis [Recovering/Resolving]
  - Hepatic enzyme increased [Recovering/Resolving]
